FAERS Safety Report 9825704 (Version 1)
Quarter: 2014Q1

REPORT INFORMATION
  Report Type: Report from Study
  Country: FR (occurrence: FR)
  Receive Date: 20140117
  Receipt Date: 20140117
  Transmission Date: 20141002
  Serious: Yes (Hospitalization)
  Sender: FDA-Public Use
  Company Number: FR-JNJFOC-20140106807

PATIENT
  Age: 82 Year
  Sex: Male
  Weight: 90 kg

DRUGS (4)
  1. REMICADE [Suspect]
     Indication: COLITIS ULCERATIVE
     Route: 042
     Dates: start: 20101228
  2. REMICADE [Suspect]
     Indication: COLITIS ULCERATIVE
     Route: 042
     Dates: start: 20101229
  3. REMICADE [Suspect]
     Indication: COLITIS ULCERATIVE
     Dosage: ON BASELINE VISIT
     Route: 042
     Dates: start: 20101207
  4. HUMIRA [Concomitant]
     Indication: COLITIS ULCERATIVE
     Route: 058
     Dates: start: 20110217

REACTIONS (3)
  - Lung adenocarcinoma metastatic [Not Recovered/Not Resolved]
  - Pleural disorder [Recovering/Resolving]
  - Pneumonia [Recovered/Resolved]
